FAERS Safety Report 23250825 (Version 1)
Quarter: 2023Q4

REPORT INFORMATION
  Report Type: Spontaneous
  Country: US (occurrence: US)
  Receive Date: 20231201
  Receipt Date: 20231201
  Transmission Date: 20240110
  Serious: Yes (Other)
  Sender: FDA-Public Use
  Company Number: US-BAYER-2023A170568

PATIENT
  Age: 76 Year
  Sex: Female

DRUGS (1)
  1. ALKA-SELTZER PLUS MAXIMUM STRENGTH SINUS, CONGESTION AND PAIN POWER MA [Suspect]
     Active Substance: ACETAMINOPHEN\DEXTROMETHORPHAN HYDROBROMIDE\PHENYLEPHRINE HYDROCHLORIDE
     Dosage: I TOOK 2 LAST NIGHT. I TOOK 1 AROUND 4:00 PM AND ANOTHER 1 AROUND 10:00 PM
     Route: 048
     Dates: start: 20231127, end: 20231127

REACTIONS (3)
  - Foreign body in throat [Recovered/Resolved]
  - Dry throat [Recovered/Resolved]
  - Throat irritation [Recovered/Resolved]

NARRATIVE: CASE EVENT DATE: 20231127
